FAERS Safety Report 7922715-0 (Version None)
Quarter: 2011Q4

REPORT INFORMATION
  Report Type: 
  Country: None (occurrence: None)
  Receive Date: 20111117
  Receipt Date: 20110510
  Transmission Date: 20120403
  Serious: No
  Sender: FDA-Public Use
  Company Number: US-ALLERGAN-1106429US

PATIENT
  Age: 79 Year
  Sex: Female

DRUGS (1)
  1. COMBIGAN [Suspect]
     Indication: INTRAOCULAR PRESSURE INCREASED
     Dosage: 2 GTT, BID
     Route: 047

REACTIONS (4)
  - EYELID MARGIN CRUSTING [None]
  - EYE IRRITATION [None]
  - EYE PRURITUS [None]
  - EYELID EXFOLIATION [None]
